FAERS Safety Report 24987613 (Version 2)
Quarter: 2025Q1

REPORT INFORMATION
  Report Type: Report from Study
  Country: US (occurrence: US)
  Receive Date: 20250219
  Receipt Date: 20250326
  Transmission Date: 20250408
  Serious: No
  Sender: SUNOVION
  Company Number: US-SUMITOMO PHARMA SWITZERLAND GMBH-2025SPA001064

PATIENT

DRUGS (6)
  1. ORGOVYX [Suspect]
     Active Substance: RELUGOLIX
     Indication: Prostate cancer
     Dosage: 360 MG, SINGLE
     Route: 048
     Dates: start: 20250125, end: 20250125
  2. ORGOVYX [Suspect]
     Active Substance: RELUGOLIX
     Dosage: 120 MG, QD
     Route: 048
     Dates: start: 20250126
  3. MELATONIN [Concomitant]
     Active Substance: MELATONIN
     Route: 065
  4. ROSUVASTATIN [Concomitant]
     Active Substance: ROSUVASTATIN
     Route: 065
  5. MAGNESIUM [Concomitant]
     Active Substance: MAGNESIUM
     Route: 065
  6. ZINC [Concomitant]
     Active Substance: ZINC
     Route: 065

REACTIONS (3)
  - Exercise tolerance decreased [Unknown]
  - Insomnia [Unknown]
  - Hot flush [Unknown]

NARRATIVE: CASE EVENT DATE: 20250101
